FAERS Safety Report 8191002 (Version 2)
Quarter: 2012Q4

REPORT INFORMATION
  Report Type: 
  Country: JP (occurrence: JP)
  Receive Date: 20111020
  Receipt Date: 20121126
  Transmission Date: 20130627
  Serious: Yes (Hospitalization)
  Sender: FDA-Public Use
  Company Number: JP-NOVOPROD-336465

PATIENT
  Age: 33 Year
  Sex: Female
  Weight: 87 kg

DRUGS (11)
  1. VICTOZA HIKACHU INJECTION [Suspect]
     Indication: TYPE 2 DIABETES MELLITUS
     Dosage: 0.3 mg, qd
     Route: 058
     Dates: start: 20110224
  2. VICTOZA HIKACHU INJECTION [Suspect]
     Dosage: 0.6 mg, qd
     Route: 058
     Dates: start: 20110303
  3. VICTOZA HIKACHU INJECTION [Suspect]
     Dosage: 0.9 mg, qd
     Route: 058
     Dates: start: 20110331, end: 20111003
  4. VICTOZA HIKACHU INJECTION [Suspect]
     Dosage: UNK
  5. AMARYL [Concomitant]
     Dosage: 3 mg, qd
     Route: 048
     Dates: start: 20071207, end: 20111003
  6. BASEN [Concomitant]
     Dosage: 0.6 mg, qd
     Route: 048
     Dates: start: 20100325, end: 20111003
  7. METGLUCO [Concomitant]
     Dosage: 2250 mg, qd
     Route: 048
     Dates: start: 20100729, end: 20111003
  8. TAKEPRON [Concomitant]
     Dosage: 30 mg, qd
     Route: 048
     Dates: start: 20090302
  9. MUCOSTA [Concomitant]
     Dosage: 300 mg, qd
     Route: 048
     Dates: start: 20090119
  10. GASMOTIN [Concomitant]
     Dosage: 10 mg, qd
     Route: 048
  11. BIOFERMIN [Concomitant]
     Dosage: 3 g, qd
     Route: 048
     Dates: start: 20110915, end: 20111003

REACTIONS (9)
  - Suicide attempt [Recovered/Resolved]
  - Suicide attempt [Recovered/Resolved]
  - Intentional overdose [Recovered/Resolved]
  - Intentional overdose [Recovered/Resolved]
  - Gastrointestinal disorder [Recovered/Resolved]
  - Gastrointestinal disorder [Recovered/Resolved]
  - Headache [Recovered/Resolved]
  - Vomiting [Recovered/Resolved]
  - Nausea [Recovered/Resolved]
